FAERS Safety Report 8852649 (Version 2)
Quarter: 2014Q2

REPORT INFORMATION
  Report Type: Spontaneous
  Country: CN (occurrence: CN)
  Receive Date: 20121022
  Receipt Date: 20131018
  Transmission Date: 20141212
  Serious: Yes (Death, Other)
  Sender: FDA-Public Use
  Company Number: CN-PFIZER INC-2012257944

PATIENT
  Age: 51 Year
  Sex: Female

DRUGS (2)
  1. CYTARABINE [Suspect]
     Indication: ACUTE MYELOID LEUKAEMIA
     Dosage: 1 G/M 2 /DAY FOR 5 DAYS
  2. CLOFARABINE [Suspect]
     Indication: ACUTE MYELOID LEUKAEMIA
     Dosage: 40 MG/M 2 /DAY FOR 5 DAYS

REACTIONS (3)
  - Palmar-plantar erythrodysaesthesia syndrome [Fatal]
  - Granulocytopenia [Unknown]
  - Staphylococcal sepsis [Unknown]
